FAERS Safety Report 14590250 (Version 2)
Quarter: 2018Q3

REPORT INFORMATION
  Report Type: Spontaneous
  Country: US (occurrence: US)
  Receive Date: 20180302
  Receipt Date: 20180703
  Transmission Date: 20181010
  Serious: No
  Sender: FDA-Public Use
  Company Number: US-PFIZER INC-2018084938

PATIENT
  Age: 76 Year
  Sex: Male
  Weight: 74.83 kg

DRUGS (3)
  1. OXALIPLATIN. [Suspect]
     Active Substance: OXALIPLATIN
     Indication: CHEMOTHERAPY
     Dosage: UNK
     Route: 042
  2. CENTRUM SILVER +50 [Concomitant]
     Dosage: 1 DF, 1X/DAY
     Route: 048
     Dates: start: 20180222
  3. CAPECITABINE. [Interacting]
     Active Substance: CAPECITABINE
     Indication: CHEMOTHERAPY
     Dosage: 1800 MG (600MG 3 PILLS), DAILY
     Route: 048

REACTIONS (3)
  - Diarrhoea [Unknown]
  - Trismus [Unknown]
  - Drug interaction [Unknown]
